FAERS Safety Report 7774440-7 (Version None)
Quarter: 2011Q3

REPORT INFORMATION
  Report Type: 
  Country: None (occurrence: None)
  Receive Date: 20110923
  Receipt Date: 20110916
  Transmission Date: 20111222
  Serious: Yes (Other)
  Sender: FDA-Public Use
  Company Number: US-UCBSA-041605

PATIENT
  Sex: Male
  Weight: 104.3 kg

DRUGS (7)
  1. CALCIUM PLUS D [Concomitant]
     Indication: CROHN'S DISEASE
  2. PREVACID [Concomitant]
     Indication: GASTROOESOPHAGEAL REFLUX DISEASE
     Route: 048
     Dates: start: 20060101
  3. MULTI-VITAMIN [Concomitant]
     Indication: CROHN'S DISEASE
     Route: 048
     Dates: start: 20060101
  4. TRAMADOL HCL [Concomitant]
     Indication: PAIN
     Route: 048
  5. CIMZIA [Suspect]
     Indication: CROHN'S DISEASE
     Dosage: 400
     Route: 058
     Dates: start: 20081208
  6. PREDNISONE [Concomitant]
     Indication: CROHN'S DISEASE
     Dates: start: 19950101
  7. CALTRATE +D [Concomitant]
     Indication: ROUTINE HEALTH MAINTENANCE
     Route: 048
     Dates: start: 20110101

REACTIONS (1)
  - WOUND INFECTION STAPHYLOCOCCAL [None]
